FAERS Safety Report 16509706 (Version 2)
Quarter: 2019Q3

REPORT INFORMATION
  Report Type: Spontaneous
  Country: ES (occurrence: ES)
  Receive Date: 20190701
  Receipt Date: 20190708
  Transmission Date: 20191004
  Serious: Yes (Congenital Anomaly)
  Sender: FDA-Public Use
  Company Number: PHHY2019ES146155

PATIENT

DRUGS (2)
  1. LEVETIRACETAM. [Suspect]
     Active Substance: LEVETIRACETAM
     Dosage: MATERNAL DOSE: UNSPECIFIED  DOSE CHANGES
     Route: 064
  2. LEVETIRACETAM. [Suspect]
     Active Substance: LEVETIRACETAM
     Indication: FOETAL EXPOSURE DURING PREGNANCY
     Dosage: MATERNAL DOSE: 1000 MG, QD
     Route: 064

REACTIONS (2)
  - Maternal exposure during pregnancy [Unknown]
  - Ventricular septal defect [Unknown]

NARRATIVE: CASE EVENT DATE: 2012
